FAERS Safety Report 5501491-5 (Version None)
Quarter: 2007Q4

REPORT INFORMATION
  Report Type: 
  Country: None (occurrence: None)
  Receive Date: 20071019
  Receipt Date: 20070718
  Transmission Date: 20080405
  Serious: Yes (Other)
  Sender: FDA-Public Use
  Company Number: HQWYE158720JUL07

PATIENT
  Age: 57 Year
  Sex: Female
  Weight: 53.57 kg

DRUGS (1)
  1. ADVIL PM [Suspect]
     Indication: INSOMNIA
     Dosage: 1 TABLET, 2 TIMES, ORAL
     Route: 048
     Dates: start: 20070701, end: 20070701

REACTIONS (2)
  - ASTHENIA [None]
  - DRUG INEFFECTIVE [None]
